FAERS Safety Report 7915180-0 (Version None)
Quarter: 2011Q4

REPORT INFORMATION
  Report Type: 
  Country: None (occurrence: None)
  Receive Date: 20111115
  Receipt Date: 20111104
  Transmission Date: 20120403
  Serious: Yes (Other)
  Sender: FDA-Public Use
  Company Number: CA-JNJFOC-20111103431

PATIENT
  Sex: Female
  Weight: 74.9 kg

DRUGS (3)
  1. REMICADE [Suspect]
     Indication: CROHN'S DISEASE
     Dates: start: 20030701
  2. VITAMIN B-12 [Concomitant]
     Dosage: EVERY 4 -5 WEEKS
     Route: 050
  3. MULTIPLE VITAMINS [Concomitant]

REACTIONS (3)
  - CHOLELITHIASIS [None]
  - MALAISE [None]
  - CROHN'S DISEASE [None]
